FAERS Safety Report 7767769-X (Version None)
Quarter: 2011Q3

REPORT INFORMATION
  Report Type: 
  Country: None (occurrence: None)
  Receive Date: 20110922
  Receipt Date: 20101210
  Transmission Date: 20111222
  Serious: No
  Sender: FDA-Public Use
  Company Number: US-ASTRAZENECA-2010SE58815

PATIENT
  Age: 5 Year
  Sex: Male
  Weight: 17.2 kg

DRUGS (3)
  1. CONCERTA [Concomitant]
  2. SEROQUEL [Suspect]
     Indication: AUTISM
     Route: 048
     Dates: start: 20090601
  3. CLONIDINE [Concomitant]

REACTIONS (1)
  - THERAPEUTIC RESPONSE UNEXPECTED [None]
